FAERS Safety Report 9579131 (Version 2)
Quarter: 2013Q4

REPORT INFORMATION
  Report Type: Spontaneous
  Country: US (occurrence: US)
  Receive Date: 20131001
  Receipt Date: 20131001
  Transmission Date: 20140711
  Serious: No
  Sender: FDA-Public Use
  Company Number: US-AMGEN-USASP2013008543

PATIENT
  Age: 56 Year
  Sex: Female
  Weight: 94.79 kg

DRUGS (1)
  1. ENBREL [Suspect]
     Indication: RHEUMATOID ARTHRITIS
     Dosage: 25 MG, 2 TIMES/WK
     Route: 058
     Dates: start: 20120701

REACTIONS (2)
  - Therapeutic response decreased [Not Recovered/Not Resolved]
  - Sinusitis [Recovered/Resolved]
